FAERS Safety Report 9461412 (Version 1)
Quarter: 2013Q3

REPORT INFORMATION
  Report Type: Report from Study
  Country: FR (occurrence: FR)
  Receive Date: 20130816
  Receipt Date: 20130816
  Transmission Date: 20140515
  Serious: Yes (Other)
  Sender: FDA-Public Use
  Company Number: FR-BAYER-2013-085641

PATIENT
  Age: 82 Year
  Sex: Female
  Weight: 70 kg

DRUGS (7)
  1. REGORAFENIB [Suspect]
     Indication: COLORECTAL CANCER METASTATIC
     Dosage: 160 MG, QD
     Route: 048
     Dates: start: 20130624, end: 20130630
  2. REGORAFENIB [Suspect]
     Indication: COLORECTAL CANCER METASTATIC
     Dosage: 160 MG, QD
     Route: 048
     Dates: start: 20130702, end: 20130708
  3. REGORAFENIB [Suspect]
     Indication: COLORECTAL CANCER METASTATIC
     Dosage: 120 MG, QD
     Route: 048
     Dates: start: 20130709, end: 20130710
  4. ARIXTRA [Concomitant]
     Indication: PULMONARY EMBOLISM
     Dosage: 7.5 (NO UNITS)
     Route: 058
     Dates: start: 201001
  5. LANTUS [Concomitant]
     Indication: DIABETES MELLITUS
     Dosage: DAILY DOSE 12 U
     Route: 058
     Dates: start: 201001
  6. FORLAX [Concomitant]
     Indication: CONSTIPATION
     Dosage: 15 (UNIT ILLEGIBLE)
     Route: 048
     Dates: start: 201001
  7. IMOVANE [Concomitant]
     Indication: INSOMNIA
     Dosage: UNK
     Route: 048
     Dates: start: 201001

REACTIONS (5)
  - Hypertension [Recovering/Resolving]
  - Mucosal inflammation [None]
  - Decreased appetite [None]
  - General physical health deterioration [Recovering/Resolving]
  - Weight decreased [None]
